FAERS Safety Report 9246849 (Version 2)
Quarter: 2014Q3

REPORT INFORMATION
  Report Type: Spontaneous
  Country: US (occurrence: US)
  Receive Date: 20130422
  Receipt Date: 20140910
  Transmission Date: 20150326
  Serious: Yes (Death, Hospitalization)
  Sender: FDA-Public Use
  Company Number: US-GLAXOSMITHKLINE-A0690181A

PATIENT
  Sex: Female
  Weight: 55 kg

DRUGS (9)
  1. GLUCOPHAGE [Concomitant]
     Active Substance: METFORMIN HYDROCHLORIDE
     Dates: start: 20040813, end: 200409
  2. GLUCOTROL XL [Concomitant]
     Active Substance: GLIPIZIDE
     Dates: start: 20040524, end: 200409
  3. CARDURA [Concomitant]
     Active Substance: DOXAZOSIN MESYLATE
  4. FOSAMAX [Concomitant]
     Active Substance: ALENDRONATE SODIUM
  5. METAMUCIL [Concomitant]
     Active Substance: PLANTAGO SEED
  6. AVANDIA [Suspect]
     Active Substance: ROSIGLITAZONE MALEATE
     Indication: TYPE 2 DIABETES MELLITUS
     Route: 048
     Dates: start: 200309, end: 200801
  7. GLUCOTROL [Concomitant]
     Active Substance: GLIPIZIDE
     Dates: start: 20040708, end: 200408
  8. POTASSIUM [Concomitant]
     Active Substance: POTASSIUM
  9. PREMARIN [Concomitant]
     Active Substance: ESTROGENS, CONJUGATED

REACTIONS (4)
  - Coronary artery disease [Unknown]
  - Sepsis [Fatal]
  - Myocardial infarction [Unknown]
  - Cardiac failure congestive [Unknown]
